FAERS Safety Report 7477789-0 (Version None)
Quarter: 2011Q2

REPORT INFORMATION
  Report Type: 
  Country: None (occurrence: None)
  Receive Date: 20110513
  Receipt Date: 20110502
  Transmission Date: 20111010
  Serious: Yes (Hospitalization)
  Sender: FDA-Public Use
  Company Number: US-ELI_LILLY_AND_COMPANY-US201104003031

PATIENT
  Sex: Male
  Weight: 79.819 kg

DRUGS (19)
  1. HUMULIN N [Suspect]
     Indication: TYPE 2 DIABETES MELLITUS
     Dosage: 22 U, EACH MORNING
     Route: 058
     Dates: start: 20080226
  2. VITAMIN D [Concomitant]
     Dosage: 1000 IU, QD
  3. AMLODIPINE BESYLATE [Concomitant]
     Dosage: 10 MG, QD
  4. NEURONTIN [Concomitant]
     Dosage: 200 MG, TID
  5. APRESOLINE [Concomitant]
     Dosage: 75 MG, QD
  6. ZOCOR [Concomitant]
     Dosage: 20 MG, EACH EVENING
  7. CARVEDILOL [Concomitant]
     Dosage: 25 DF, BID
  8. HUMULIN N [Suspect]
     Dosage: 18 U, EACH EVENING
     Route: 058
     Dates: start: 20080226
  9. HUMULIN N [Suspect]
     Dosage: 18 U, EACH EVENING
     Route: 058
     Dates: start: 20080226
  10. FISH OIL [Concomitant]
     Dosage: 2000 MG, EACH MORNING
  11. VALSARTAN [Concomitant]
     Dosage: 320 MG, QD
  12. HUMULIN N [Suspect]
     Dosage: 14 U, EACH EVENING
     Route: 058
  13. PLAVIX [Concomitant]
     Dosage: 75 MG, QD
     Route: 048
  14. ASPIRIN [Concomitant]
     Dosage: 81 MG, QD
  15. FOLIC ACID [Concomitant]
     Dosage: 1 MG, QD
  16. HUMULIN N [Suspect]
     Dosage: 22 U, EACH MORNING
     Route: 058
     Dates: start: 20080226
  17. NOVOLOG [Concomitant]
     Dosage: UNK, PRN
  18. LASIX [Concomitant]
     Dosage: 20 MG, QD
  19. NITROGLYCERIN [Concomitant]
     Dosage: 0.4 MG, PRN
     Route: 060

REACTIONS (3)
  - CORONARY ARTERY DISEASE [None]
  - ARRHYTHMIA [None]
  - HYPOGLYCAEMIA [None]
